FAERS Safety Report 6596356-4 (Version None)
Quarter: 2010Q1

REPORT INFORMATION
  Report Type: 
  Country: None (occurrence: None)
  Receive Date: 20100223
  Receipt Date: 20100215
  Transmission Date: 20100710
  Serious: Yes (Hospitalization)
  Sender: FDA-Public Use
  Company Number: US-ELI_LILLY_AND_COMPANY-US201002004265

PATIENT
  Sex: Female

DRUGS (5)
  1. HUMALOG [Suspect]
     Indication: DIABETES MELLITUS
     Dosage: UNK, AS NEEDED
     Dates: start: 20060101
  2. HUMULIN R [Suspect]
  3. LANTUS [Concomitant]
  4. LISINOPRIL [Concomitant]
  5. OMEPRAZOL [Concomitant]
     Indication: GASTROOESOPHAGEAL REFLUX DISEASE

REACTIONS (4)
  - ANXIETY [None]
  - CORONARY ARTERY BYPASS [None]
  - DRUG DISPENSING ERROR [None]
  - MEDICATION ERROR [None]
